FAERS Safety Report 7909284-6 (Version None)
Quarter: 2011Q4

REPORT INFORMATION
  Report Type: 
  Country: None (occurrence: None)
  Receive Date: 20111111
  Receipt Date: 20111108
  Transmission Date: 20120403
  Serious: Yes (Other)
  Sender: FDA-Public Use
  Company Number: US-PFIZER INC-2011273781

PATIENT
  Sex: Female
  Weight: 63.5 kg

DRUGS (6)
  1. MULTI-VITAMINS [Concomitant]
     Dosage: UNK
  2. VITAMIN D [Concomitant]
     Dosage: UNK
  3. MAGNESIUM [Concomitant]
     Dosage: UNK
  4. ESTRING [Suspect]
     Indication: OFF LABEL USE
     Dosage: UNK
     Route: 067
     Dates: start: 20111008, end: 20111105
  5. ESTRING [Interacting]
     Indication: VAGINAL ABSCESS
  6. CHLORTHALIDONE [Interacting]
     Indication: HYPERTENSION
     Dosage: 12.5 MG, 1X/DAY
     Route: 048
     Dates: start: 20111014

REACTIONS (5)
  - HYPERTENSION [None]
  - FUNCTIONAL GASTROINTESTINAL DISORDER [None]
  - DRUG INTERACTION [None]
  - RETINAL VEIN OCCLUSION [None]
  - DIABETES MELLITUS [None]
